FAERS Safety Report 5446097-1 (Version None)
Quarter: 2007Q3

REPORT INFORMATION
  Report Type: 
  Country: None (occurrence: None)
  Receive Date: 20070907
  Receipt Date: 20070828
  Transmission Date: 20080115
  Serious: Yes (Other)
  Sender: FDA-Public Use
  Company Number: DE-AMGEN-UK225491

PATIENT
  Age: 25 Year
  Sex: Female
  Weight: 45 kg

DRUGS (3)
  1. MIMPARA [Suspect]
     Indication: DRUG USE FOR UNKNOWN INDICATION
     Route: 048
     Dates: start: 20070101
  2. VITAMIN D [Concomitant]
     Route: 065
  3. RENAGEL [Concomitant]
     Route: 065

REACTIONS (5)
  - BLOOD PARATHYROID HORMONE INCREASED [None]
  - GASTRIC DISORDER [None]
  - MYALGIA [None]
  - NAUSEA [None]
  - SKIN DISORDER [None]
